FAERS Safety Report 14838134 (Version 1)
Quarter: 2018Q2

REPORT INFORMATION
  Report Type: Spontaneous
  Country: US (occurrence: US)
  Receive Date: 20180502
  Receipt Date: 20180502
  Transmission Date: 20180711
  Serious: No
  Sender: FDA-Public Use
  Company Number: US-BIOGEN-2018BI00562608

PATIENT
  Sex: Female

DRUGS (1)
  1. AVONEX [Suspect]
     Active Substance: INTERFERON BETA-1A
     Indication: MULTIPLE SCLEROSIS
     Route: 065
     Dates: start: 20030924

REACTIONS (6)
  - Cognitive disorder [Unknown]
  - Memory impairment [Unknown]
  - Multiple sclerosis relapse [Unknown]
  - Mobility decreased [Unknown]
  - Reading disorder [Unknown]
  - Alopecia [Unknown]
